FAERS Safety Report 19595371 (Version 1)
Quarter: 2021Q3

REPORT INFORMATION
  Report Type: Spontaneous
  Country: CN (occurrence: CN)
  Receive Date: 20210722
  Receipt Date: 20210722
  Transmission Date: 20211014
  Serious: Yes (Death, Other)
  Sender: FDA-Public Use
  Company Number: CN-JNJFOC-20210728616

PATIENT

DRUGS (5)
  1. INVEGA SUSTENNA [Suspect]
     Active Substance: PALIPERIDONE PALMITATE
     Indication: PRODUCT USED FOR UNKNOWN INDICATION
     Route: 030
  2. INVEGA SUSTENNA [Suspect]
     Active Substance: PALIPERIDONE PALMITATE
  3. RISPERDAL [Suspect]
     Active Substance: RISPERIDONE
     Indication: PRODUCT USED FOR UNKNOWN INDICATION
     Route: 065
  4. INVEGA [Suspect]
     Active Substance: PALIPERIDONE
     Indication: PRODUCT USED FOR UNKNOWN INDICATION
     Route: 048
  5. INVEGA SUSTENNA [Suspect]
     Active Substance: PALIPERIDONE PALMITATE

REACTIONS (26)
  - Hepatic enzyme increased [Unknown]
  - Hepatic function abnormal [Unknown]
  - Anaemia [Unknown]
  - Blood lactate dehydrogenase increased [Unknown]
  - Blood glucose increased [Unknown]
  - Completed suicide [Fatal]
  - Extrapyramidal disorder [Unknown]
  - Death [Fatal]
  - Amenorrhoea [Unknown]
  - Nausea [Unknown]
  - Sinus bradycardia [Unknown]
  - Schizophreniform disorder [Unknown]
  - Neuroleptic malignant syndrome [Unknown]
  - Hypoacusis [Unknown]
  - Urinary retention [Unknown]
  - Galactorrhoea [Unknown]
  - Somnolence [Unknown]
  - Blood prolactin increased [Unknown]
  - Electrocardiogram abnormal [Unknown]
  - Weight increased [Unknown]
  - Mental disorder [Unknown]
  - Visual impairment [Unknown]
  - White blood cell count decreased [Unknown]
  - Hypersensitivity [Unknown]
  - Oedema peripheral [Unknown]
  - Blood triglycerides increased [Unknown]
